FAERS Safety Report 15880419 (Version 1)
Quarter: 2019Q1

REPORT INFORMATION
  Report Type: Spontaneous
  Country: US (occurrence: US)
  Receive Date: 20190103
  Receipt Date: 20190103
  Transmission Date: 20190417
  Serious: No
  Sender: FDA-Public Use
  Company Number: None

PATIENT
  Age: 40 Year
  Sex: Male

DRUGS (1)
  1. GILENYA [Suspect]
     Active Substance: FINGOLIMOD HYDROCHLORIDE
     Indication: MULTIPLE SCLEROSIS
     Dosage: ?          OTHER DOSE:0.5 MG;OTHER FREQUENCY:ONCE DAILY;?
     Route: 048
     Dates: start: 20170620

REACTIONS (2)
  - Drug ineffective [None]
  - Eye movement disorder [None]

NARRATIVE: CASE EVENT DATE: 20181015
